FAERS Safety Report 9179809 (Version 2)
Quarter: 2013Q1

REPORT INFORMATION
  Report Type: Spontaneous
  Country: FR (occurrence: FR)
  Receive Date: 20130321
  Receipt Date: 20130328
  Transmission Date: 20140127
  Serious: Yes (Other)
  Sender: FDA-Public Use
  Company Number: FR-PFIZER INC-2013088239

PATIENT
  Sex: Female

DRUGS (5)
  1. TAHOR [Suspect]
     Indication: DYSLIPIDAEMIA
     Dosage: 10 MG, 1X/DAY
     Route: 048
     Dates: start: 20130305
  2. PLAVIX [Suspect]
     Indication: ACUTE CORONARY SYNDROME
     Dosage: 600 MG, IN THE EVENING
     Route: 048
     Dates: start: 20130305
  3. ASPEGIC [Suspect]
     Indication: ACUTE CORONARY SYNDROME
     Dosage: 500 MG IN EVENING
     Route: 048
     Dates: start: 20130304
  4. ASPEGIC [Suspect]
     Dosage: 250 MG AT LUNCH
     Route: 048
     Dates: start: 20130305
  5. CEFTRIAXONE [Suspect]
     Indication: LUNG DISORDER
     Dosage: 1 G, SINGLE
     Dates: start: 20130305, end: 20130305

REACTIONS (2)
  - Rash morbilliform [Not Recovered/Not Resolved]
  - Pruritus [Not Recovered/Not Resolved]
